FAERS Safety Report 5152610-4 (Version None)
Quarter: 2006Q4

REPORT INFORMATION
  Report Type: 
  Country: None (occurrence: None)
  Receive Date: 20061109
  Receipt Date: 20061025
  Transmission Date: 20070319
  Serious: Yes (Hospitalization)
  Sender: FDA-Public Use
  Company Number: PAR_1019_2006

PATIENT
  Age: 65 Year

DRUGS (5)
  1. IBUPROFEN [Suspect]
     Dosage: 400 MG TID
  2. ASPIRIN [Suspect]
     Indication: ANTIPLATELET THERAPY
     Dosage: 75 MG QDAY PO
     Route: 048
  3. CLEXANE [Suspect]
     Dosage: 40 MG QDAY SC
     Route: 058
  4. CLOPIDOGREL [Suspect]
     Dosage: 75 MG QDAY PO
     Route: 048
  5. PREDNISOLONE [Suspect]
     Dosage: 40 MG QDAY PO
     Route: 048

REACTIONS (2)
  - HELICOBACTER INFECTION [None]
  - UPPER GASTROINTESTINAL HAEMORRHAGE [None]
